FAERS Safety Report 24670835 (Version 1)
Quarter: 2024Q4

REPORT INFORMATION
  Report Type: Spontaneous
  Country: TR (occurrence: TR)
  Receive Date: 20241127
  Receipt Date: 20241127
  Transmission Date: 20250114
  Serious: Yes (Death, Other)
  Sender: AMGEN
  Company Number: TR-AMGEN-TURSP2024231685

PATIENT

DRUGS (1)
  1. ADALIMUMAB [Suspect]
     Active Substance: ADALIMUMAB
     Indication: Behcet^s syndrome
     Dosage: UNK
     Route: 065

REACTIONS (7)
  - Pulmonary artery aneurysm [Fatal]
  - Aortic aneurysm rupture [Fatal]
  - Aortoenteric fistula [Fatal]
  - Cardiovascular disorder [Fatal]
  - Thrombosis [Unknown]
  - Angiopathy [Unknown]
  - Off label use [Unknown]
